FAERS Safety Report 7347827 (Version 3)
Quarter: 2013Q4

REPORT INFORMATION
  Report Type: Spontaneous
  Country: GB (occurrence: GB)
  Receive Date: 20100407
  Receipt Date: 20131001
  Transmission Date: 20140711
  Serious: Yes (Disabling)
  Sender: FDA-Public Use
  Company Number: GB-PFIZER INC-2010038620

PATIENT
  Age: 38 Year
  Sex: Male
  Weight: 80 kg

DRUGS (5)
  1. AZITHROMYCIN [Suspect]
     Indication: BRONCHIECTASIS
     Dosage: 500 MG, 3 TIMES EVERY 2 WEEKS
     Dates: start: 20090205, end: 20090616
  2. OCTAGAM [Suspect]
     Indication: PRIMARY IMMUNODEFICIENCY SYNDROME
     Dosage: 40 G, 1X/DAY
     Route: 042
     Dates: start: 20090528, end: 20090528
  3. IMMUNOGLOBULIN HUMAN NORMAL [Suspect]
     Dosage: 3 G, UNK
     Route: 058
     Dates: start: 20100120
  4. IMMUNOGLOBULIN HUMAN NORMAL [Suspect]
     Indication: PRIMARY IMMUNODEFICIENCY SYNDROME
     Dosage: 40 G, UNK
     Route: 042
     Dates: start: 20090729
  5. ACETYLSALICYLIC ACID [Concomitant]

REACTIONS (2)
  - Alopecia [Recovered/Resolved]
  - Dermatitis exfoliative [Recovered/Resolved]
